FAERS Safety Report 14742305 (Version 1)
Quarter: 2018Q2

REPORT INFORMATION
  Report Type: Other
  Country: None (occurrence: CO)
  Receive Date: 20180410
  Receipt Date: 20180410
  Transmission Date: 20180711
  Serious: Yes (Other)
  Sender: FDA-Public Use
  Company Number: CO-POPULATION COUNCIL, INC.-2045486

PATIENT
  Age: 22 Year
  Sex: Female
  Weight: 72 kg

DRUGS (1)
  1. JADELLE [Suspect]
     Active Substance: LEVONORGESTREL
     Indication: CONTRACEPTION
     Route: 059
     Dates: start: 20170913

REACTIONS (2)
  - Pregnancy with implant contraceptive [None]
  - Drug ineffective [None]

NARRATIVE: CASE EVENT DATE: 20180102
